FAERS Safety Report 20091006 (Version 1)
Quarter: 2021Q4

REPORT INFORMATION
  Report Type: Spontaneous
  Country: US (occurrence: None)
  Receive Date: 20211119
  Receipt Date: 20211119
  Transmission Date: 20220303
  Serious: No
  Sender: FDA-Public Use
  Company Number: None

PATIENT
  Age: 74 Year
  Sex: Male
  Weight: 50 kg

DRUGS (3)
  1. BARICITINIB [Suspect]
     Active Substance: BARICITINIB
     Indication: COVID-19 pneumonia
     Dosage: FREQUENCY : DAILY;?
     Route: 048
     Dates: start: 20211030, end: 20211108
  2. BARICITINIB [Suspect]
     Active Substance: BARICITINIB
     Dosage: OTHER QUANTITY : 500/50 MCG;?FREQUENCY : TWICE A DAY;?OTHER ROUTE : INHALE;?
     Route: 050
     Dates: start: 20210824, end: 20211107
  3. BARICITINIB [Suspect]
     Active Substance: BARICITINIB
     Indication: Chronic obstructive pulmonary disease
     Route: 055
     Dates: start: 20210824, end: 20211107

REACTIONS (2)
  - Oral candidiasis [None]
  - Oral pain [None]

NARRATIVE: CASE EVENT DATE: 20211108
